FAERS Safety Report 14903664 (Version 2)
Quarter: 2018Q3

REPORT INFORMATION
  Report Type: Spontaneous
  Country: US (occurrence: US)
  Receive Date: 20180516
  Receipt Date: 20180813
  Transmission Date: 20181010
  Serious: No
  Sender: FDA-Public Use
  Company Number: US-ACTELION-A-US2018-171716

PATIENT
  Age: 82 Year
  Sex: Female

DRUGS (1)
  1. VALCHLOR [Suspect]
     Active Substance: MECHLORETHAMINE
     Indication: MYCOSIS FUNGOIDES
     Dosage: MONDAY, WED, FRIDAY
     Route: 061
     Dates: start: 20180416, end: 201807

REACTIONS (4)
  - Pruritus [Unknown]
  - Application site pain [Recovering/Resolving]
  - Application site erythema [Recovering/Resolving]
  - Skin discolouration [Recovering/Resolving]

NARRATIVE: CASE EVENT DATE: 201807
